FAERS Safety Report 7032013-8 (Version None)
Quarter: 2010Q4

REPORT INFORMATION
  Report Type: 
  Country: None (occurrence: None)
  Receive Date: 20101001
  Receipt Date: 20100923
  Transmission Date: 20110411
  Serious: Yes (Hospitalization)
  Sender: FDA-Public Use
  Company Number: 019150

PATIENT
  Sex: Male

DRUGS (3)
  1. KEPPRA [Suspect]
     Indication: EPILEPSY
     Dosage: (500 MG TID ORAL), (500 MG TID ORAL)
     Route: 048
     Dates: end: 20100726
  2. KEPPRA [Suspect]
     Indication: EPILEPSY
     Dosage: (500 MG TID ORAL), (500 MG TID ORAL)
     Route: 048
     Dates: start: 20100729
  3. MICROPAKINE [Concomitant]

REACTIONS (2)
  - DRUG DISPENSING ERROR [None]
  - STATUS EPILEPTICUS [None]
